FAERS Safety Report 6244195-6 (Version None)
Quarter: 2009Q2

REPORT INFORMATION
  Report Type: 
  Country: None (occurrence: None)
  Receive Date: 20090625
  Receipt Date: 20090618
  Transmission Date: 20091009
  Serious: Yes (Hospitalization)
  Sender: FDA-Public Use
  Company Number: US-BIOGENIDEC-2009BI019011

PATIENT
  Sex: Female
  Weight: 65 kg

DRUGS (2)
  1. AVONEX [Suspect]
     Indication: MULTIPLE SCLEROSIS
     Route: 030
     Dates: start: 19960801, end: 20030101
  2. AVONEX [Suspect]
     Route: 030
     Dates: start: 20030101, end: 20090101

REACTIONS (5)
  - BACK PAIN [None]
  - INTERVERTEBRAL DISC PROTRUSION [None]
  - PERIPHERAL NERVE LESION [None]
  - SCAR [None]
  - SCIATICA [None]
